FAERS Safety Report 6984770 (Version 3)
Quarter: 2013Q4

REPORT INFORMATION
  Report Type: Spontaneous
  Country: US (occurrence: US)
  Receive Date: 20090501
  Receipt Date: 20131205
  Transmission Date: 20140711
  Serious: Yes (Hospitalization, Other)
  Sender: FDA-Public Use
  Company Number: US-ALEXION-A200700125

PATIENT
  Age: 59 Year
  Sex: Female

DRUGS (34)
  1. SOLIRIS [Suspect]
     Dosage: 900 MG, SINGLE
     Route: 042
     Dates: start: 20080611, end: 20080611
  2. SOLIRIS [Suspect]
     Dosage: 900 MG, SINGLE
     Route: 042
     Dates: start: 20080625, end: 20080625
  3. SOLIRIS [Suspect]
     Dosage: 900 MG, SINGLE
     Route: 042
     Dates: start: 20080709, end: 20080709
  4. SOLIRIS [Suspect]
     Dosage: 900 MG, SINGLE
     Route: 042
     Dates: start: 20080723, end: 20080723
  5. CARDIZEM [Concomitant]
     Dosage: 120 MG, QD
     Route: 048
  6. LASIX [Concomitant]
     Dosage: 20 MG, PRN
     Route: 048
  7. K-LOR [Concomitant]
     Dosage: 20 MEQ, PRN
     Route: 048
  8. METOPROLOL [Concomitant]
     Dosage: UNK, QD
     Route: 048
  9. PREDNISONE [Concomitant]
     Indication: HAEMOLYSIS
     Dosage: 15 MG, QOD
     Route: 048
  10. PREDNISONE [Concomitant]
     Dosage: 5 MG, PRN
     Route: 048
  11. PREDNISONE [Concomitant]
     Dosage: 15 MG, QD
     Route: 048
  12. COUMADIN [Concomitant]
     Dosage: 5 MG, QD
     Route: 048
  13. COUMADIN [Concomitant]
     Dosage: 3.3 MG, QOD
     Route: 048
  14. VITAMIN B [Concomitant]
     Dosage: UNK
  15. FOLIC ACID [Concomitant]
     Dosage: UNK
  16. CALCIUM [Concomitant]
     Dosage: UNK
  17. ZINC [Concomitant]
     Dosage: UNK
  18. MULTIVITAMIN [Concomitant]
     Dosage: UNK
  19. FISH OIL [Concomitant]
     Dosage: UNK
  20. PANCREASE [Concomitant]
     Indication: PANCREATITIS
     Dosage: UNK
     Route: 048
  21. SOLIRIS [Suspect]
     Indication: PAROXYSMAL NOCTURNAL HAEMOGLOBINURIA
     Dosage: 600 MG, SINGLE
     Route: 042
     Dates: start: 20071219, end: 20071219
  22. SOLIRIS [Suspect]
     Dosage: 600 MG, SINGLE
     Route: 042
     Dates: start: 20071226, end: 20071226
  23. SOLIRIS [Suspect]
     Dosage: 600 MG, SINGLE
     Route: 042
     Dates: start: 20080102, end: 20080102
  24. SOLIRIS [Suspect]
     Dosage: 600 MG, SINGLE
     Route: 042
     Dates: start: 20080109, end: 20080109
  25. SOLIRIS [Suspect]
     Dosage: 900 MG, SINGLE
     Route: 042
     Dates: start: 20080116, end: 20080116
  26. SOLIRIS [Suspect]
     Dosage: 900 MG, SINGLE
     Route: 042
     Dates: start: 20080206, end: 20080206
  27. SOLIRIS [Suspect]
     Dosage: 900 MG, SINGLE
     Route: 042
     Dates: start: 20080220, end: 20080220
  28. SOLIRIS [Suspect]
     Dosage: 900 MG, SINGLE
     Route: 042
     Dates: start: 20080304, end: 20080304
  29. SOLIRIS [Suspect]
     Dosage: 900 MG, SINGLE
     Route: 042
     Dates: start: 20080318, end: 20080318
  30. SOLIRIS [Suspect]
     Dosage: 900 MG, SINGLE
     Route: 042
     Dates: start: 20080401, end: 20080401
  31. SOLIRIS [Suspect]
     Dosage: 900 MG, SINGLE
     Route: 042
     Dates: start: 20080415, end: 20080415
  32. SOLIRIS [Suspect]
     Dosage: 900 MG, SINGLE
     Route: 042
     Dates: start: 20080429, end: 20080429
  33. SOLIRIS [Suspect]
     Dosage: 900 MG, SINGLE
     Route: 042
     Dates: start: 20080514, end: 20080514
  34. SOLIRIS [Suspect]
     Dosage: 900 MG, SINGLE
     Route: 042
     Dates: start: 20080529, end: 20080529

REACTIONS (36)
  - Fall [Recovered/Resolved]
  - Bacteraemia [Not Recovered/Not Resolved]
  - Dyspnoea [Recovering/Resolving]
  - Intestinal obstruction [Recovered/Resolved]
  - Colitis ischaemic [Recovering/Resolving]
  - Colitis [Recovered/Resolved]
  - Pelvic fracture [Not Recovered/Not Resolved]
  - Intestinal perforation [Unknown]
  - Abdominal pain [Recovered/Resolved]
  - Cystitis [Recovered/Resolved]
  - Large intestinal stenosis [Unknown]
  - Anaemia [Not Recovered/Not Resolved]
  - Splenomegaly [Unknown]
  - Ocular icterus [Unknown]
  - International normalised ratio increased [Not Recovered/Not Resolved]
  - Haematoma [Not Recovered/Not Resolved]
  - Haemolysis [Recovered/Resolved]
  - Bone marrow disorder [Not Recovered/Not Resolved]
  - Rhinorrhoea [Recovered/Resolved]
  - Hot flush [Recovered/Resolved]
  - Somnolence [Unknown]
  - Blood urine present [Unknown]
  - Cystitis [Recovered/Resolved]
  - Diarrhoea [Recovered/Resolved]
  - Catheter placement [Recovered/Resolved]
  - Blood potassium decreased [Recovered/Resolved]
  - Dehydration [Recovered/Resolved]
  - Epistaxis [Recovered/Resolved]
  - Vomiting [Not Recovered/Not Resolved]
  - Pyrexia [Recovered/Resolved]
  - Back pain [Recovered/Resolved]
  - Dizziness [Unknown]
  - Pruritus [Unknown]
  - Anxiety [Recovering/Resolving]
  - Cough [Unknown]
  - Contusion [Unknown]
